FAERS Safety Report 8430365 (Version 4)
Quarter: 2012Q4

REPORT INFORMATION
  Report Type: Report from Study
  Country: FR (occurrence: FR)
  Receive Date: 20120228
  Receipt Date: 20121205
  Transmission Date: 20130627
  Serious: Yes (Other)
  Sender: FDA-Public Use
  Company Number: FR-BAYER-2012-017837

PATIENT
  Age: 60 Year
  Sex: Male
  Weight: 88 kg

DRUGS (21)
  1. SORAFENIB (RAF KINASE INHIBITOR) [Suspect]
     Indication: CARCINOMA HEPATOCELLULAR
     Dosage: daily dose: 800mg
     Route: 048
     Dates: start: 20111026, end: 20120104
  2. SORAFENIB (RAF KINASE INHIBITOR) [Suspect]
     Indication: HEPATIC CANCER METASTATIC
  3. OXALIPLATIN [Suspect]
     Indication: CARCINOMA HEPATOCELLULAR
     Dosage: daily dose: 160
     Route: 042
     Dates: start: 20111027, end: 20111222
  4. OXALIPLATIN [Suspect]
     Indication: HEPATIC CANCER METASTATIC
  5. GEMCITABINE [Suspect]
     Indication: CARCINOMA HEPATOCELLULAR
     Dosage: daily dose: 2000
     Route: 042
     Dates: start: 20111026, end: 20111221
  6. GEMCITABINE [Suspect]
     Indication: HEPATIC CANCER METASTATIC
  7. TEMERIT [Concomitant]
     Indication: HYPERTENSION ARTERIAL
     Dosage: dose: 5mg
     Route: 048
     Dates: start: 2010
  8. COTAREG [Concomitant]
     Indication: HYPERTENSION ARTERIAL
     Dosage: dose: 160mg
     Route: 048
     Dates: start: 201012
  9. IPERTEN [Concomitant]
     Indication: HYPERTENSION ARTERIAL
     Dosage: dose: 30mg
     Route: 048
     Dates: start: 2006, end: 20121023
  10. LANTUS [Concomitant]
     Indication: DIABETES
     Dosage: 16 iu, QD
     Route: 058
     Dates: start: 20120220
  11. LANTUS [Concomitant]
     Indication: DIABETES
     Dosage: dose: 16 iu
     Route: 058
     Dates: start: 20120220
  12. HUMALOG [Concomitant]
     Indication: DIABETES
     Dosage: 5.7.7
     Route: 058
     Dates: start: 201109
  13. HUMALOG [Concomitant]
     Indication: DIABETES
     Dosage: UNK
     Dates: start: 20120118
  14. RUPATADINE [Concomitant]
     Indication: PRURITUS
     Dosage: dose: 10 mg
     Route: 048
     Dates: end: 20120605
  15. VITAMIN B1 AND B6 [Concomitant]
     Indication: VITAMIN DEFICIENCY
     Dosage: dose: 3 cp
     Route: 048
     Dates: start: 20110915
  16. EUPANTOL [Concomitant]
     Indication: GASTRITIS
     Dosage: dose: 40 mg
     Route: 048
     Dates: start: 2011
  17. QUESTRAN [Concomitant]
     Indication: PRURITUS
     Dosage: dose: 1 sachet
     Route: 048
     Dates: start: 20111020
  18. NEBIVOLOL [Concomitant]
  19. VALSARTAN [Concomitant]
  20. INSULIN GLARGINE [Concomitant]
  21. MANIDIPINE [Concomitant]

REACTIONS (2)
  - Muscle necrosis [Recovered/Resolved]
  - Myalgia [Recovered/Resolved]
